FAERS Safety Report 15591014 (Version 2)
Quarter: 2018Q4

REPORT INFORMATION
  Report Type: Spontaneous
  Country: JP (occurrence: JP)
  Receive Date: 20181106
  Receipt Date: 20181112
  Transmission Date: 20190205
  Serious: Yes (Other)
  Sender: FDA-Public Use
  Company Number: JP-PFIZER INC-2018445615

PATIENT
  Age: 20 Year
  Sex: Female

DRUGS (1)
  1. SUTENT [Suspect]
     Active Substance: SUNITINIB MALATE
     Indication: RENAL CANCER
     Dosage: 37.5 MG, DAILY (2 WEEKS ON AND 1 WEEKS OFF BASIS)
     Route: 048

REACTIONS (2)
  - Neoplasm progression [Unknown]
  - Cancer pain [Unknown]
